FAERS Safety Report 25222804 (Version 2)
Quarter: 2025Q3

REPORT INFORMATION
  Report Type: Report from Study
  Country: US (occurrence: US)
  Receive Date: 20250422
  Receipt Date: 20250924
  Transmission Date: 20251020
  Serious: Yes (Other)
  Sender: ABBVIE
  Company Number: US-ABBVIE-5869561

PATIENT
  Age: 50 Year
  Sex: Female
  Weight: 43 kg

DRUGS (2)
  1. SKYRIZI [Suspect]
     Active Substance: RISANKIZUMAB-RZAA
     Indication: Crohn^s disease
     Route: 058
     Dates: start: 20230810
  2. TYLENOL [Concomitant]
     Active Substance: ACETAMINOPHEN
     Indication: Product used for unknown indication
     Route: 048
     Dates: start: 202310

REACTIONS (8)
  - Arthralgia [Recovered/Resolved]
  - Myalgia [Recovering/Resolving]
  - Meniscus injury [Recovered/Resolved]
  - Arthralgia [Recovering/Resolving]
  - Inflammation [Recovering/Resolving]
  - Insulin resistance [Not Recovered/Not Resolved]
  - Weight increased [Recovered/Resolved]
  - Pain [Recovered/Resolved]

NARRATIVE: CASE EVENT DATE: 20231008
